FAERS Safety Report 6577654-7 (Version None)
Quarter: 2010Q1

REPORT INFORMATION
  Report Type: 
  Country: None (occurrence: None)
  Receive Date: 20100211
  Receipt Date: 20100202
  Transmission Date: 20100710
  Serious: Yes (Hospitalization)
  Sender: FDA-Public Use
  Company Number: PHHY2009FR56634

PATIENT
  Sex: Female

DRUGS (9)
  1. ACLASTA [Suspect]
     Indication: OSTEOPOROTIC FRACTURE
     Dosage: 5 MG
     Route: 042
     Dates: start: 20091210
  2. ACLASTA [Suspect]
     Dosage: UNK
     Route: 042
     Dates: start: 20091215
  3. UVEDOSE [Concomitant]
  4. LEVOTHYROXINE SODIUM [Concomitant]
     Indication: HYPOTHYROIDISM
  5. ATACAND [Concomitant]
     Indication: HYPERTENSION
  6. VASTAREL [Concomitant]
     Indication: HYPERTENSION
  7. XANAX [Concomitant]
     Indication: DEPRESSION
  8. NOCTRAN [Concomitant]
     Indication: DEPRESSION
  9. ESCITALOPRAM [Concomitant]
     Indication: DEPRESSION

REACTIONS (7)
  - C-REACTIVE PROTEIN INCREASED [None]
  - ERYSIPELAS [None]
  - INFLUENZA LIKE ILLNESS [None]
  - JOINT SWELLING [None]
  - PAIN IN EXTREMITY [None]
  - PYREXIA [None]
  - RED BLOOD CELL SEDIMENTATION RATE INCREASED [None]
